FAERS Safety Report 5978195 (Version 2)
Quarter: 2013Q3

REPORT INFORMATION
  Report Type: Spontaneous
  Country: FR (occurrence: None)
  Receive Date: 20060127
  Receipt Date: 20130703
  Transmission Date: 20140515
  Serious: Yes (Death, Life-Threatening, Other)
  Sender: FDA-Public Use
  Company Number: 221232

PATIENT
  Age: 55 Year
  Sex: Male
  Weight: 78 kg

DRUGS (4)
  1. INNOHEP [Suspect]
     Indication: DEEP VEIN THROMBOSIS
     Dosage: 600 MG, QD, INTRAVENOUS
     Route: 058
  2. ADRIAMYCIN [Concomitant]
  3. CYCLOPHOSPHAMIDE (CYCLOPHOSPHAMIDE) [Concomitant]
  4. VINCRISTINE SULFATE [Concomitant]

REACTIONS (7)
  - Pneumonia [None]
  - Shock [None]
  - Condition aggravated [None]
  - White blood cell count decreased [None]
  - Platelet count decreased [None]
  - Febrile neutropenia [None]
  - Agranulocytosis [None]
